FAERS Safety Report 4380254-0 (Version None)
Quarter: 2004Q2

REPORT INFORMATION
  Report Type: 
  Country: None (occurrence: None)
  Receive Date: 20040618
  Receipt Date: 20010817
  Transmission Date: 20050107
  Serious: Yes (Hospitalization)
  Sender: FDA-Public Use
  Company Number: 200114494DE

PATIENT
  Sex: Female

DRUGS (6)
  1. TAXOTERE [Suspect]
     Indication: BREAST CANCER
     Route: 042
     Dates: start: 20010808, end: 20010808
  2. ADRIAMYCIN PFS [Concomitant]
     Route: 042
     Dates: start: 20010808, end: 20010808
  3. DEXAMETHASONE [Concomitant]
  4. FAUSTAN [Concomitant]
     Route: 048
  5. NAVOBAN [Concomitant]
     Route: 048
  6. TAMOXIFEN CITRATE [Concomitant]
     Route: 048

REACTIONS (5)
  - ABSCESS [None]
  - COLITIS [None]
  - DRUG TOXICITY [None]
  - FLANK PAIN [None]
  - POST PROCEDURAL COMPLICATION [None]
